FAERS Safety Report 17898846 (Version 3)
Quarter: 2020Q3

REPORT INFORMATION
  Report Type: Spontaneous
  Country: US (occurrence: US)
  Receive Date: 20200615
  Receipt Date: 20200710
  Transmission Date: 20201103
  Serious: No
  Sender: FDA-Public Use
  Company Number: US-AMGEN-USASP2020091290

PATIENT
  Age: 81 Year
  Sex: Male

DRUGS (1)
  1. REPATHA [Suspect]
     Active Substance: EVOLOCUMAB
     Indication: BLOOD CHOLESTEROL INCREASED
     Dosage: 140 MILLIGRAM, Q2WK
     Route: 065
     Dates: start: 20200112

REACTIONS (5)
  - Body temperature increased [Recovered/Resolved]
  - Headache [Unknown]
  - Non-cardiac chest pain [Recovered/Resolved]
  - Mood swings [Unknown]
  - Myalgia [Unknown]

NARRATIVE: CASE EVENT DATE: 2020
